FAERS Safety Report 8166009-X (Version None)
Quarter: 2012Q1

REPORT INFORMATION
  Report Type: 
  Country: None (occurrence: None)
  Receive Date: 20120227
  Receipt Date: 20110218
  Transmission Date: 20120608
  Serious: No
  Sender: FDA-Public Use
  Company Number: US-MYLANLABS-2011S1002458

PATIENT
  Age: 30 Year
  Sex: Female
  Weight: 72.58 kg

DRUGS (3)
  1. AMNESTEEM [Suspect]
     Indication: ACNE CYSTIC
     Dosage: 40MG ON ODD DAYS, 80MG ON EVEN DAYS
     Route: 048
     Dates: start: 20101206, end: 20110202
  2. AMNESTEEM [Suspect]
     Dosage: 40MG ON ODD DAYS, 80MG ON EVEN DAYS
     Route: 048
     Dates: start: 20101206, end: 20110202
  3. YAZ /01502501/ [Concomitant]
     Indication: CONTRACEPTION
     Route: 048
     Dates: start: 20100506

REACTIONS (4)
  - PRURITUS [None]
  - ECZEMA [None]
  - RASH ERYTHEMATOUS [None]
  - ACNE [None]
